FAERS Safety Report 17013542 (Version 1)
Quarter: 2019Q4

REPORT INFORMATION
  Report Type: Report from Study
  Country: GT (occurrence: GT)
  Receive Date: 20191110
  Receipt Date: 20191110
  Transmission Date: 20200122
  Serious: Yes (Other)
  Sender: FDA-Public Use
  Company Number: NVSC2019GT028060

PATIENT
  Age: 76 Year
  Sex: Male

DRUGS (1)
  1. VYMADA [Suspect]
     Active Substance: SACUBITRIL\VALSARTAN
     Indication: CARDIAC DISORDER
     Dosage: 200 MG
     Route: 065
     Dates: start: 20190413

REACTIONS (5)
  - Cardiac disorder [Unknown]
  - Diabetes mellitus [Unknown]
  - Malaise [Unknown]
  - Product use in unapproved indication [Unknown]
  - Visual impairment [Unknown]
